FAERS Safety Report 14349211 (Version 1)
Quarter: 2018Q1

REPORT INFORMATION
  Report Type: Other
  Country: US (occurrence: US)
  Receive Date: 20180104
  Receipt Date: 20180104
  Transmission Date: 20180509
  Serious: Yes (Hospitalization)
  Sender: FDA-Public Use
  Company Number: US-UNITED THERAPEUTICS-UNT-2017-018342

PATIENT
  Age: 60 Year
  Sex: Female
  Weight: 69.39 kg

DRUGS (2)
  1. WARFARIN [Concomitant]
     Active Substance: WARFARIN
     Indication: PRODUCT USED FOR UNKNOWN INDICATION
     Route: 065
  2. TYVASO [Suspect]
     Active Substance: TREPROSTINIL
     Indication: PULMONARY ARTERIAL HYPERTENSION
     Dosage: 60 - 120 MICROGRAMS, QID
     Dates: start: 20150306

REACTIONS (2)
  - Off label use [Unknown]
  - Vascular graft [Unknown]

NARRATIVE: CASE EVENT DATE: 20171130
